FAERS Safety Report 8824327 (Version 2)
Quarter: 2012Q4

REPORT INFORMATION
  Report Type: 
  Country: US (occurrence: US)
  Receive Date: 20121004
  Receipt Date: 20121116
  Transmission Date: 20130627
  Serious: Yes (Life-Threatening, Hospitalization)
  Sender: FDA-Public Use
  Company Number: US-BAYER-2012-098533

PATIENT
  Age: 20 Year
  Sex: Female

DRUGS (4)
  1. YASMIN [Suspect]
     Indication: MENSTRUAL CRAMP
     Dosage: UNK
     Dates: start: 20110701
  2. YAZ [Suspect]
     Indication: PREMENSTRUAL SYNDROME
     Dosage: UNK
     Dates: start: 20110706
  3. ZARAH [Suspect]
  4. VENTOLIN HFA [Concomitant]

REACTIONS (21)
  - Pulmonary embolism [None]
  - Muscle spasms [None]
  - Depression [None]
  - Anxiety [None]
  - Fear [None]
  - Fatigue [None]
  - Insomnia [None]
  - Palpitations [None]
  - Hypopnoea [None]
  - Dizziness [None]
  - Dyspnoea [None]
  - Loss of consciousness [None]
  - Pain in extremity [None]
  - Injury [None]
  - General physical health deterioration [None]
  - Anhedonia [None]
  - Pain [None]
  - Pain [None]
  - Emotional distress [None]
  - Hypoaesthesia [None]
  - Dyspnoea [None]
